FAERS Safety Report 6905206-5 (Version None)
Quarter: 2010Q3

REPORT INFORMATION
  Report Type: 
  Country: None (occurrence: None)
  Receive Date: 20100804
  Receipt Date: 20100723
  Transmission Date: 20110219
  Serious: Yes (Hospitalization)
  Sender: FDA-Public Use
  Company Number: US-JNJFOC-20100707772

PATIENT
  Sex: Female
  Weight: 145.15 kg

DRUGS (5)
  1. STELARA [Suspect]
     Indication: PSORIASIS
     Route: 058
  2. ARAVA [Concomitant]
  3. LOPRESSOR [Concomitant]
  4. DIOVAN [Concomitant]
  5. ARANESP [Concomitant]
     Indication: ANAEMIA

REACTIONS (5)
  - DIARRHOEA [None]
  - HEADACHE [None]
  - HYPOTENSION [None]
  - PERICARDITIS [None]
  - RENAL IMPAIRMENT [None]
